FAERS Safety Report 4656297-6 (Version None)
Quarter: 2005Q2

REPORT INFORMATION
  Report Type: 
  Country: None (occurrence: None)
  Receive Date: 20050509
  Receipt Date: 20050404
  Transmission Date: 20051028
  Serious: No
  Sender: FDA-Public Use
  Company Number: US-GLAXOSMITHKLINE-A0552611A

PATIENT
  Age: 72 Year
  Sex: Male

DRUGS (6)
  1. AVANDAMET [Suspect]
     Dosage: 2MG FOUR TIMES PER DAY
     Route: 048
  2. BENICAR [Concomitant]
  3. NORVASC [Concomitant]
  4. ASPIRIN [Concomitant]
  5. MESTINON [Concomitant]
  6. DOXAZOSIN [Concomitant]

REACTIONS (1)
  - SWELLING [None]
